FAERS Safety Report 4902973-7 (Version None)
Quarter: 2006Q1

REPORT INFORMATION
  Report Type: 
  Country: None (occurrence: None)
  Receive Date: 20060207
  Receipt Date: 20051001
  Transmission Date: 20060701
  Serious: No
  Sender: FDA-Public Use
  Company Number: PR-MERCK-0510USA01791

PATIENT
  Age: 75 Year
  Sex: Female
  Weight: 64 kg

DRUGS (2)
  1. VIOXX [Suspect]
     Indication: BACK PAIN
     Route: 048
     Dates: start: 19990101
  2. TYLENOL [Concomitant]
     Route: 065

REACTIONS (2)
  - MOTOR DYSFUNCTION [None]
  - SYNCOPE [None]
